FAERS Safety Report 4993120-4 (Version None)
Quarter: 2006Q1

REPORT INFORMATION
  Report Type: 
  Country: None (occurrence: None)
  Receive Date: 20060313
  Receipt Date: 20060124
  Transmission Date: 20060701
  Serious: No
  Sender: FDA-Public Use
  Company Number: 2006-BP-00229BP

PATIENT
  Age: 77 Year
  Sex: Male

DRUGS (2)
  1. SPIRIVA [Suspect]
     Indication: CHRONIC OBSTRUCTIVE PULMONARY DISEASE
     Dosage: 18 MCG (18 MCG),IH
     Dates: start: 20050101, end: 20060105
  2. SPIRIVA [Suspect]

REACTIONS (3)
  - DYSPNOEA [None]
  - DYSPNOEA EXACERBATED [None]
  - ORAL DISCOMFORT [None]
